FAERS Safety Report 20531714 (Version 1)
Quarter: 2022Q1

REPORT INFORMATION
  Report Type: Spontaneous
  Country: US (occurrence: US)
  Receive Date: 20220301
  Receipt Date: 20220301
  Transmission Date: 20220423
  Serious: No
  Sender: FDA-Public Use
  Company Number: US-SANOFI-00989051

PATIENT
  Sex: Male

DRUGS (1)
  1. DUPIXENT [Suspect]
     Active Substance: DUPILUMAB
     Dosage: UNK

REACTIONS (5)
  - Eye pruritus [Unknown]
  - Eye swelling [Unknown]
  - Eyelid exfoliation [Unknown]
  - Ocular hyperaemia [Unknown]
  - Visual impairment [Unknown]
